FAERS Safety Report 20429355 (Version 2)
Quarter: 2022Q1

REPORT INFORMATION
  Report Type: Spontaneous
  Country: BR (occurrence: BR)
  Receive Date: 20220204
  Receipt Date: 20220221
  Transmission Date: 20220424
  Serious: Yes (Hospitalization)
  Sender: FDA-Public Use
  Company Number: BR-GUERBET / KOREA-BR-20220009

PATIENT
  Age: 67 Year
  Sex: Female
  Weight: 66 kg

DRUGS (1)
  1. OPTIRAY 320 [Suspect]
     Active Substance: IOVERSOL
     Indication: Computerised tomogram
     Route: 042
     Dates: start: 20211228, end: 20211228

REACTIONS (3)
  - Eye pruritus [Recovered/Resolved]
  - Urticaria [Recovered/Resolved]
  - Throat tightness [Recovered/Resolved]

NARRATIVE: CASE EVENT DATE: 20211228
